FAERS Safety Report 9979164 (Version 1)
Quarter: 2014Q1

REPORT INFORMATION
  Report Type: Report from Study
  Country: US (occurrence: US)
  Receive Date: 20140306
  Receipt Date: 20140306
  Transmission Date: 20141002
  Serious: No
  Sender: FDA-Public Use
  Company Number: US-ABBVIE-13P-163-1169573-00

PATIENT
  Age: 44 Year
  Sex: Female

DRUGS (3)
  1. HUMIRA [Suspect]
     Indication: COLITIS ULCERATIVE
     Dates: start: 20130930, end: 20131028
  2. AMITRIPTYLINE [Concomitant]
     Indication: COLITIS ULCERATIVE
     Dosage: 25 MG DAILY
     Route: 048
  3. CITALOPRAM [Concomitant]
     Indication: MENTAL DISORDER
     Dosage: 20 MG DAILY
     Route: 048

REACTIONS (2)
  - Influenza like illness [Recovering/Resolving]
  - Drug ineffective [Unknown]
